FAERS Safety Report 4830615-8 (Version None)
Quarter: 2005Q4

REPORT INFORMATION
  Report Type: 
  Country: None (occurrence: None)
  Receive Date: 20051115
  Receipt Date: 20051102
  Transmission Date: 20060501
  Serious: Yes (Life-Threatening, Hospitalization, Other)
  Sender: FDA-Public Use
  Company Number: HQWYE357502NOV05

PATIENT
  Age: 78 Year
  Sex: Male

DRUGS (9)
  1. PANTO (PANTOPRAZOLE, INJECTION) [Suspect]
     Indication: GASTROINTESTINAL HAEMORRHAGE
     Dosage: 40 MG 1X PER 1 DAY INTRAVENOUS
     Route: 042
     Dates: start: 20030419, end: 20030422
  2. PHENYTOIN [Suspect]
     Dosage: SEE IMAGE
     Dates: start: 20030407, end: 20030419
  3. PHENYTOIN [Suspect]
     Dosage: SEE IMAGE
     Dates: start: 20030420, end: 20030423
  4. PHENYTOIN [Suspect]
     Dosage: SEE IMAGE
     Dates: start: 20030423, end: 20030424
  5. LEVODOPA (LEVODOPA) [Concomitant]
  6. WARFARIN SODIUM [Concomitant]
  7. PROSCAR [Concomitant]
  8. RANITIDINE [Concomitant]
  9. PROPRANOLOL [Concomitant]

REACTIONS (1)
  - THROMBOCYTOPENIA [None]
